FAERS Safety Report 25409366 (Version 1)
Quarter: 2025Q2

REPORT INFORMATION
  Report Type: Spontaneous
  Country: US (occurrence: US)
  Receive Date: 20250607
  Receipt Date: 20250607
  Transmission Date: 20250716
  Serious: Yes (Hospitalization)
  Sender: AMGEN
  Company Number: US-AMGEN-USASP2025111664

PATIENT
  Age: 55 Year
  Sex: Female

DRUGS (10)
  1. APREMILAST [Suspect]
     Active Substance: APREMILAST
     Indication: Product used for unknown indication
     Route: 065
  2. METOPROLOL [Concomitant]
     Active Substance: METOPROLOL
  3. LISINOPRIL [Concomitant]
     Active Substance: LISINOPRIL
     Dosage: 40 MILLIGRAM, QD
  4. ROSUVASTATIN [Concomitant]
     Active Substance: ROSUVASTATIN
  5. ROPINIROLE [Concomitant]
     Active Substance: ROPINIROLE
  6. PROGESTERONE [Concomitant]
     Active Substance: PROGESTERONE
  7. DULOXETINE [Concomitant]
     Active Substance: DULOXETINE
  8. BUPROPION [Concomitant]
     Active Substance: BUPROPION
  9. RIZATRIPTAN [Concomitant]
     Active Substance: RIZATRIPTAN
  10. BUSPIRONE [Concomitant]
     Active Substance: BUSPIRONE HYDROCHLORIDE
     Dosage: 10 MILLIGRAM, TID

REACTIONS (3)
  - Hypertension [Recovering/Resolving]
  - Confusional state [Unknown]
  - Sleep terror [Unknown]
